FAERS Safety Report 19290306 (Version 1)
Quarter: 2021Q2

REPORT INFORMATION
  Report Type: Spontaneous
  Country: US (occurrence: US)
  Receive Date: 20210521
  Receipt Date: 20210521
  Transmission Date: 20210717
  Serious: No
  Sender: FDA-Public Use
  Company Number: US-RADIUS HEALTH INC.-2021US001400

PATIENT
  Sex: Male

DRUGS (3)
  1. TYMLOS [Suspect]
     Active Substance: ABALOPARATIDE
     Indication: OSTEOPOROSIS
     Dosage: 80 MCG, QD
  2. SOLATOL [Concomitant]
     Active Substance: SOTALOL
     Indication: HEART RATE IRREGULAR
  3. ATORVASTATIN [Concomitant]
     Active Substance: ATORVASTATIN
     Indication: CHOLESTEROSIS
     Dosage: UNK

REACTIONS (3)
  - Off label use [Unknown]
  - Peripheral swelling [Recovering/Resolving]
  - Joint stiffness [Recovered/Resolved]
